FAERS Safety Report 10239477 (Version 1)
Quarter: 2014Q1

REPORT INFORMATION
  Report Type: Spontaneous
  Country: US (occurrence: None)
  Receive Date: 20140306
  Receipt Date: 20140306
  Transmission Date: 20141002
  Serious: Yes (Other)
  Sender: FDA-Public Use
  Company Number: 163-21880-13092664

PATIENT
  Age: 73 Year
  Sex: Male
  Weight: 72.58 kg

DRUGS (7)
  1. REVLIMID (LENALIDOMIDE) (10 MILLIGRAMS, CAPSULES) [Suspect]
     Indication: PLASMA CELL MYELOMA
     Route: 048
     Dates: start: 201010
  2. DEXAMETHASONE (DEXAMETHASONE) (UNKNOWN) [Concomitant]
  3. ENALAPRIL MALEATE (ENALAPRIL MALEATE) (UNKNOWN) [Concomitant]
  4. AVODART (DUTASTERIDE) (CAPSULES) [Concomitant]
  5. AMITRIPTYLINE HCL (AMITRIPTYLINE HYDROCHLORIDE) (UNKNOWN) [Concomitant]
  6. FLOMAX (TAMSULOSIN) (CAPSULES) [Concomitant]
  7. GLUCOSAMIDE CHONDROITIN (GLUCOSAMIDE W/ CHONDROITIN SULFATE) (UNKNOWN) [Concomitant]

REACTIONS (1)
  - Deep vein thrombosis [None]
